FAERS Safety Report 24454894 (Version 2)
Quarter: 2024Q4

REPORT INFORMATION
  Report Type: Report from Study
  Country: JP (occurrence: JP)
  Receive Date: 20241017
  Receipt Date: 20241018
  Transmission Date: 20250114
  Serious: No
  Sender: ROCHE
  Company Number: JP-ROCHE-3475280

PATIENT
  Age: 70 Year
  Sex: Male

DRUGS (4)
  1. RITUXIMAB [Suspect]
     Active Substance: RITUXIMAB
     Indication: Extranodal marginal zone B-cell lymphoma (MALT type)
     Route: 065
  2. BENDAMUSTINE [Concomitant]
     Active Substance: BENDAMUSTINE
  3. TIXAGEVIMAB [Concomitant]
     Active Substance: TIXAGEVIMAB
  4. CILGAVIMAB [Concomitant]
     Active Substance: CILGAVIMAB

REACTIONS (1)
  - COVID-19 [Unknown]
